FAERS Safety Report 9349075 (Version 1)
Quarter: 2013Q2

REPORT INFORMATION
  Report Type: Spontaneous
  Country: US (occurrence: US)
  Receive Date: 20130614
  Receipt Date: 20130614
  Transmission Date: 20140414
  Serious: Yes (Other)
  Sender: FDA-Public Use
  Company Number: US-PFIZER INC-2013176965

PATIENT
  Age: 57 Year
  Sex: Male
  Weight: 58.05 kg

DRUGS (3)
  1. VIAGRA [Suspect]
     Indication: ERECTILE DYSFUNCTION
     Dosage: 100 MG, AS NEEDED
     Dates: start: 1995
  2. ALBUTEROL SULFATE [Concomitant]
     Indication: DYSPNOEA
     Dosage: UNK
  3. IPRATROPIUM BROMIDE [Concomitant]
     Indication: DYSPNOEA
     Dosage: UNK

REACTIONS (2)
  - Chronic obstructive pulmonary disease [Unknown]
  - Blood potassium increased [Unknown]
